FAERS Safety Report 12167613 (Version 2)
Quarter: 2016Q1

REPORT INFORMATION
  Report Type: Spontaneous
  Country: FR (occurrence: FR)
  Receive Date: 20160310
  Receipt Date: 20160324
  Transmission Date: 20160526
  Serious: Yes (Congenital Anomaly)
  Sender: FDA-Public Use
  Company Number: PHHY2016FR029841

PATIENT

DRUGS (3)
  1. GILENYA [Suspect]
     Active Substance: FINGOLIMOD HYDROCHLORIDE
     Indication: FOETAL EXPOSURE DURING PREGNANCY
     Dosage: MATERNAL DOSE: 0.5 OT, DAILY, ORALLY
     Route: 064
  2. SOLU-MEDROL [Suspect]
     Active Substance: METHYLPREDNISOLONE SODIUM SUCCINATE
     Indication: FOETAL EXPOSURE DURING PREGNANCY
     Dosage: MATERNAL DOSE: 500 MG, DAILY, IV
     Route: 064
  3. TYSABRI [Suspect]
     Active Substance: NATALIZUMAB
     Indication: FOETAL EXPOSURE DURING PREGNANCY
     Route: 064

REACTIONS (2)
  - Foetal exposure during pregnancy [Unknown]
  - Heart disease congenital [Not Recovered/Not Resolved]

NARRATIVE: CASE EVENT DATE: 20151225
